FAERS Safety Report 4714667-1 (Version None)
Quarter: 2005Q3

REPORT INFORMATION
  Report Type: 
  Country: None (occurrence: None)
  Receive Date: 20050715
  Receipt Date: 20041125
  Transmission Date: 20060218
  Serious: Yes (Hospitalization)
  Sender: FDA-Public Use
  Company Number: JP-ABBOTT-04P-087-0281983-01

PATIENT
  Age: 67 Year
  Sex: Female

DRUGS (6)
  1. HUMIRA [Suspect]
     Indication: RHEUMATOID ARTHRITIS
     Dosage: 80 MG
     Route: 058
     Dates: start: 20040816, end: 20040927
  2. BUCILLAMINE [Concomitant]
     Indication: RHEUMATOID ARTHRITIS
     Route: 048
     Dates: start: 20040305, end: 20040715
  3. BUCILLAMINE [Concomitant]
     Route: 048
     Dates: start: 20041012, end: 20041211
  4. PREDNISOLONE [Concomitant]
     Indication: RHEUMATOID ARTHRITIS
     Route: 048
     Dates: start: 20040301, end: 20041107
  5. PREDNISOLONE [Concomitant]
     Dates: start: 20041108
  6. PREDNISOLONE [Concomitant]
     Dates: start: 20041108

REACTIONS (2)
  - CRYPTOGENIC ORGANIZING PNEUMONIA [None]
  - PNEUMONIA [None]
